FAERS Safety Report 5909934-X (Version None)
Quarter: 2008Q4

REPORT INFORMATION
  Report Type: 
  Country: None (occurrence: None)
  Receive Date: 20081006
  Receipt Date: 20081006
  Transmission Date: 20090506
  Serious: No
  Sender: FDA-Public Use
  Company Number: None

PATIENT
  Sex: Male
  Weight: 66.1 kg

DRUGS (4)
  1. CAMPATH [Suspect]
     Dosage: 43 MG
  2. CYCLOPHOSPHAMIDE [Suspect]
     Dosage: 5738 MG
  3. PENTOSTATIN [Suspect]
     Dosage: 36.54 MG
  4. RITUXIMAB (MOAB C2B8 ANTI CD20, CHIMERIC) [Suspect]
     Dosage: 4666 MG

REACTIONS (5)
  - DISEASE PROGRESSION [None]
  - LYMPHOCYTE COUNT ABNORMAL [None]
  - NEUTROPHIL COUNT DECREASED [None]
  - PLATELET COUNT DECREASED [None]
  - WHITE BLOOD CELL COUNT DECREASED [None]
